FAERS Safety Report 8554234 (Version 3)
Quarter: 2013Q1

REPORT INFORMATION
  Report Type: Spontaneous
  Country: US (occurrence: US)
  Receive Date: 20120509
  Receipt Date: 20130212
  Transmission Date: 20140127
  Serious: Yes (Hospitalization)
  Sender: FDA-Public Use
  Company Number: US-ELI_LILLY_AND_COMPANY-US201204009971

PATIENT
  Sex: Female

DRUGS (13)
  1. FORTEO [Suspect]
     Indication: OSTEOPOROSIS
     Dosage: 20 UG, QD
     Route: 065
     Dates: start: 20120712
  2. FORTEO [Suspect]
     Dosage: 20 UG, QD
     Route: 065
  3. FORTEO [Suspect]
     Dosage: 20 UG, QD
     Route: 065
     Dates: start: 20120712
  4. ALBUTEROL [Concomitant]
     Dosage: UNK, QD
  5. ADVAIR [Concomitant]
     Dosage: UNK, QD
  6. VITAMIN D3 [Concomitant]
     Dosage: UNK, QD
  7. SYNTHROID [Concomitant]
     Dosage: UNK, QD
  8. ZOLOFT [Concomitant]
     Dosage: UNK, QD
  9. LASIX                              /00032601/ [Concomitant]
     Dosage: UNK, QD
  10. PREDNISONE [Concomitant]
  11. SOTALOL [Concomitant]
     Indication: CARDIAC DISORDER
     Dosage: 80 MG, QD
  12. CALTRATE                           /00751519/ [Concomitant]
     Dosage: UNK, QD
  13. COUMADIN [Concomitant]

REACTIONS (5)
  - Heart rate increased [Unknown]
  - Pneumonia [Unknown]
  - Aphonia [Unknown]
  - Dysphonia [Unknown]
  - Injection site bruising [Not Recovered/Not Resolved]
